FAERS Safety Report 5815692-X (Version None)
Quarter: 2008Q3

REPORT INFORMATION
  Report Type: 
  Country: None (occurrence: None)
  Receive Date: 20080721
  Receipt Date: 20080717
  Transmission Date: 20090109
  Serious: Yes (Other)
  Sender: FDA-Public Use
  Company Number: AU-SP-2008-01742

PATIENT
  Age: 23 Year
  Sex: Female

DRUGS (1)
  1. IMMUCYST [Suspect]
     Indication: IMMUNISATION
     Route: 023
     Dates: start: 20080516

REACTIONS (5)
  - INCORRECT ROUTE OF DRUG ADMINISTRATION [None]
  - INJECTION SITE SWELLING [None]
  - LOCAL REACTION [None]
  - OVERDOSE [None]
  - WRONG DRUG ADMINISTERED [None]
